FAERS Safety Report 20997810 (Version 1)
Quarter: 2022Q2

REPORT INFORMATION
  Report Type: Spontaneous
  Country: US (occurrence: US)
  Receive Date: 20220623
  Receipt Date: 20220623
  Transmission Date: 20220720
  Serious: Yes (Life-Threatening, Hospitalization)
  Sender: FDA-Public Use
  Company Number: US-MYLANLABS-2022M1046938

PATIENT
  Age: 31 Year
  Sex: Male

DRUGS (8)
  1. DEXAMETHASONE [Suspect]
     Active Substance: DEXAMETHASONE
     Indication: Cortisol increased
     Dosage: UNK
     Route: 065
  2. CISPLATIN [Suspect]
     Active Substance: CISPLATIN
     Indication: Adrenocortical carcinoma
     Dosage: UNK
     Route: 065
  3. DOXORUBICIN [Suspect]
     Active Substance: DOXORUBICIN
     Indication: Adrenocortical carcinoma
     Dosage: UNK
     Route: 065
  4. ETOPOSIDE [Suspect]
     Active Substance: ETOPOSIDE
     Indication: Adrenocortical carcinoma
     Dosage: UNK
     Route: 065
  5. METYRAPONE [Suspect]
     Active Substance: METYRAPONE
     Indication: Adrenocortical carcinoma
     Dosage: UNK
     Route: 065
  6. METYRAPONE [Suspect]
     Active Substance: METYRAPONE
     Dosage: 750 MILLIGRAM, DOSE INCREASED
     Route: 065
  7. MITOTANE [Suspect]
     Active Substance: MITOTANE
     Indication: Adrenocortical carcinoma
     Dosage: UNK
     Route: 065
  8. MITOTANE [Suspect]
     Active Substance: MITOTANE
     Dosage: 1000 MILLIGRAM, TID
     Route: 065

REACTIONS (6)
  - Pyrexia [Unknown]
  - Pneumonia [Unknown]
  - Respiratory failure [Unknown]
  - Neutropenia [Unknown]
  - Anaemia [Unknown]
  - Drug ineffective [Unknown]
